FAERS Safety Report 17325200 (Version 1)
Quarter: 2020Q1

REPORT INFORMATION
  Report Type: Spontaneous
  Country: US (occurrence: US)
  Receive Date: 20200110
  Receipt Date: 20200110
  Transmission Date: 20200409
  Serious: No
  Sender: FDA-Public Use
  Company Number: None

PATIENT
  Age: 43 Year
  Sex: Male

DRUGS (1)
  1. ENBREL [Suspect]
     Active Substance: ETANERCEPT
     Dosage: ?          OTHER FREQUENCY:UNKNOWN;?
     Route: 058
     Dates: start: 201001

REACTIONS (5)
  - Musculoskeletal stiffness [None]
  - Product storage error [None]
  - Swelling [None]
  - Pain [None]
  - Therapeutic product effect decreased [None]

NARRATIVE: CASE EVENT DATE: 20200110
